FAERS Safety Report 6175059-4 (Version None)
Quarter: 2009Q2

REPORT INFORMATION
  Report Type: 
  Country: None (occurrence: None)
  Receive Date: 20090430
  Receipt Date: 20090215
  Transmission Date: 20091009
  Serious: No
  Sender: FDA-Public Use
  Company Number: US-ASTRAZENECA-2009UW04307

PATIENT
  Age: 75 Year
  Sex: Female
  Weight: 72.6 kg

DRUGS (1)
  1. NEXIUM [Suspect]
     Indication: ABDOMINAL DISCOMFORT
     Route: 048
     Dates: start: 20090212

REACTIONS (2)
  - ABDOMINAL DISCOMFORT [None]
  - ANORECTAL DISCOMFORT [None]
